FAERS Safety Report 9158328 (Version 2)
Quarter: 2013Q1

REPORT INFORMATION
  Report Type: Spontaneous
  Country: GB (occurrence: None)
  Receive Date: 20130211
  Receipt Date: 20130213
  Transmission Date: 20140127
  Serious: Yes (Other)
  Sender: FDA-Public Use
  Company Number: 1584839

PATIENT
  Age: 48 Year
  Sex: Male
  Weight: 73.6 kg

DRUGS (8)
  1. CARBOPLATIN [Suspect]
     Indication: NON-SMALL CELL LUNG CANCER
     Dosage: 380 MG MILLIGRAM(S), 1 WEEK, INTRAVAVENOUS (NOT OTHERWISE SPECIFIED)
     Route: 042
     Dates: start: 20130110
  2. PEMETREXED [Concomitant]
  3. ONDANSETRON [Concomitant]
  4. DEXAMETHASONE [Concomitant]
  5. METOCLOPRAMIDE [Concomitant]
  6. VITAMIN B12 [Concomitant]
  7. IRON [Concomitant]
  8. FOLIC ACID [Concomitant]

REACTIONS (3)
  - Aspartate aminotransferase increased [None]
  - Alanine aminotransferase increased [None]
  - Blood bilirubin increased [None]
